FAERS Safety Report 7484985-5 (Version None)
Quarter: 2011Q2

REPORT INFORMATION
  Report Type: 
  Country: None (occurrence: None)
  Receive Date: 20110517
  Receipt Date: 20110510
  Transmission Date: 20111010
  Serious: Yes (Hospitalization)
  Sender: FDA-Public Use
  Company Number: IT-B.I. PHARMACEUTICALS,INC./RIDGEFIELD-2011-BP-13070YA

PATIENT
  Sex: Male

DRUGS (5)
  1. LEVOFLOXACIN [Suspect]
     Indication: URINARY TRACT INFECTION
     Route: 048
     Dates: start: 20110503, end: 20110506
  2. GABAPENTIN [Concomitant]
  3. TAMSULOSIN HCL [Suspect]
     Indication: BENIGN PROSTATIC HYPERPLASIA
     Route: 048
     Dates: start: 20110503, end: 20110506
  4. ZOLPIDEM [Concomitant]
  5. CYANOCOBALAMIN [Concomitant]

REACTIONS (5)
  - DIZZINESS [None]
  - ULNA FRACTURE [None]
  - FALL [None]
  - VERTIGO [None]
  - RADIUS FRACTURE [None]
